FAERS Safety Report 17741890 (Version 17)
Quarter: 2020Q3

REPORT INFORMATION
  Report Type: Report from Study
  Country: DE (occurrence: DE)
  Receive Date: 20200504
  Receipt Date: 20200928
  Transmission Date: 20201102
  Serious: Yes (Hospitalization, Other)
  Sender: FDA-Public Use
  Company Number: DE-PFIZER INC-2020176800

PATIENT
  Age: 59 Year
  Sex: Female

DRUGS (21)
  1. METFORMIN HYDROCHLORIDE. [Suspect]
     Active Substance: METFORMIN HYDROCHLORIDE
     Dosage: 850 MILLIGRAM, QD
     Route: 048
     Dates: start: 20190830, end: 20190919
  2. TORASEMIDE [Suspect]
     Active Substance: TORSEMIDE
     Dosage: UNK
     Route: 065
  3. ACICLOVIR [Suspect]
     Active Substance: ACYCLOVIR
     Indication: PROPHYLAXIS
     Dosage: 400 MG, TID (ONCE IN 8 HOURS) (400 MILLIGRAM, Q8HR)
     Route: 048
     Dates: start: 20190108
  4. TILIDIN [Suspect]
     Active Substance: NALOXONE HYDROCHLORIDE\TILIDINE HYDROCHLORIDE
     Dosage: UNK
     Route: 065
  5. CLINDAMYCIN. [Concomitant]
     Active Substance: CLINDAMYCIN
     Indication: PROPHYLAXIS
     Dosage: 300 MG, FOUR TIMES DAILY (300 MILLIGRAM, Q6HR)
     Route: 048
     Dates: start: 20190117, end: 20190123
  6. JANUMET [Concomitant]
     Active Substance: METFORMIN HYDROCHLORIDE\SITAGLIPTIN PHOSPHATE
     Dosage: 1000 MG, BID (1000 MILLIGRAM, Q12H)
     Route: 048
     Dates: start: 20190117, end: 20190419
  7. PANTOPRAZOLE [Suspect]
     Active Substance: PANTOPRAZOLE
     Indication: PROPHYLAXIS
     Dosage: 40 MILLIGRAM, QD
     Route: 048
     Dates: start: 20190117
  8. COTRIMOXAZOLE [Suspect]
     Active Substance: SULFAMETHOXAZOLE\TRIMETHOPRIM
     Indication: PROPHYLAXIS
     Dosage: 960 MG, TIW(960 MILLIGRAM, 3/WEEK)
     Route: 048
     Dates: start: 20190108
  9. XARELTO [Suspect]
     Active Substance: RIVAROXABAN
     Indication: PROPHYLAXIS
     Dosage: 20 MILLIGRAM, QD
     Route: 048
     Dates: start: 20190409, end: 20190429
  10. AMPHO?MORONAL [Suspect]
     Active Substance: AMPHOTERICIN B
     Indication: PROPHYLAXIS
     Dosage: UNK UNK, QD
     Route: 048
     Dates: start: 20190830
  11. MOZOBIL [Suspect]
     Active Substance: PLERIXAFOR
     Indication: PLASMA CELL MYELOMA
     Dosage: 0.18 MG/KG, QD
     Route: 058
     Dates: start: 20190507, end: 20190507
  12. PLERIXAFOR [Suspect]
     Active Substance: PLERIXAFOR
     Dosage: 0.18 MILLIGRAM/KILOGRAM, QD
     Route: 058
     Dates: start: 20190507, end: 20190507
  13. AMOCLAV [AMOXICILLIN TRIHYDRATE;CLAVULANATE POTASSIUM] [Concomitant]
     Active Substance: AMOXICILLIN\CLAVULANATE POTASSIUM
     Indication: PROPHYLAXIS
     Dosage: 125 MG, BID (125 MILLIGRAM, Q12H)
     Route: 048
     Dates: start: 20190409, end: 20190414
  14. TORASEMIDE [Suspect]
     Active Substance: TORSEMIDE
     Dosage: 5 MILLIGRAM, QD
     Route: 048
     Dates: start: 20190830, end: 20190919
  15. PLERIXAFOR [Suspect]
     Active Substance: PLERIXAFOR
     Indication: PLASMA CELL MYELOMA
     Dosage: UNK UNK, 1X/DAY
     Route: 058
     Dates: start: 20190505, end: 20190505
  16. ALLOPURINOL. [Concomitant]
     Active Substance: ALLOPURINOL
     Dosage: 300 MILLIGRAM, QD
     Route: 048
     Dates: start: 20190117, end: 20190419
  17. METFORMIN HYDROCHLORIDE. [Suspect]
     Active Substance: METFORMIN HYDROCHLORIDE
     Dosage: UNK
     Route: 065
  18. AMPHO?MORONAL [Concomitant]
     Active Substance: AMPHOTERICIN B
     Indication: PROPHYLAXIS
     Dosage: UNK, QD
     Route: 048
     Dates: start: 20190108, end: 20190409
  19. DELIX (RAMIPRIL) [Suspect]
     Active Substance: RAMIPRIL
     Dosage: 5 MILLIGRAM, QD
     Route: 048
     Dates: start: 20190117
  20. PLERIXAFOR [Suspect]
     Active Substance: PLERIXAFOR
     Dosage: 0.24 MILLIGRAM/KILOGRAM, QD
     Route: 058
     Dates: start: 20190507, end: 20190507
  21. TILIDIN [Suspect]
     Active Substance: NALOXONE HYDROCHLORIDE\TILIDINE HYDROCHLORIDE
     Dosage: 8 MG, BID (8 MILLIGRAM, Q12H)
     Route: 048
     Dates: start: 20190830, end: 20190919

REACTIONS (2)
  - Febrile neutropenia [Recovered/Resolved]
  - Escherichia infection [Recovered/Resolved]

NARRATIVE: CASE EVENT DATE: 20190603
